FAERS Safety Report 20662885 (Version 5)
Quarter: 2022Q2

REPORT INFORMATION
  Report Type: Report from Study
  Country: US (occurrence: US)
  Receive Date: 20220401
  Receipt Date: 20220621
  Transmission Date: 20220720
  Serious: Yes (Other)
  Sender: FDA-Public Use
  Company Number: US-NOVARTISTESTPH-NVSC2022US073658

PATIENT
  Age: 41 Year
  Sex: Male

DRUGS (1)
  1. ENTRESTO [Suspect]
     Active Substance: SACUBITRIL\VALSARTAN
     Indication: Product used for unknown indication
     Dosage: 1 DOSAGE FORM, BID(49/51MG)
     Route: 048
     Dates: start: 202112

REACTIONS (8)
  - Nasopharyngitis [Unknown]
  - Oropharyngeal pain [Unknown]
  - Glossodynia [Unknown]
  - Decreased appetite [Unknown]
  - Decreased activity [Unknown]
  - Sluggishness [Unknown]
  - Weight decreased [Unknown]
  - Hypotension [Unknown]

NARRATIVE: CASE EVENT DATE: 20220328
